FAERS Safety Report 23879825 (Version 1)
Quarter: 2024Q2

REPORT INFORMATION
  Report Type: Spontaneous
  Country: US (occurrence: US)
  Receive Date: 20240521
  Receipt Date: 20240521
  Transmission Date: 20240716
  Serious: No
  Sender: FDA-Public Use
  Company Number: US-ASTELLAS-2024US012848

PATIENT
  Age: 65 Year
  Sex: Female

DRUGS (1)
  1. VEOZAH [Suspect]
     Active Substance: FEZOLINETANT
     Indication: Hot flush
     Dosage: 45 MG, ONCE DAILY (EVERY EVENING 6 PM)
     Route: 048
     Dates: start: 202311

REACTIONS (1)
  - Disease recurrence [Not Recovered/Not Resolved]

NARRATIVE: CASE EVENT DATE: 20240301
